FAERS Safety Report 8561319 (Version 2)
Quarter: 2012Q4

REPORT INFORMATION
  Report Type: 
  Country: US (occurrence: US)
  Receive Date: 20120514
  Receipt Date: 20120905
  Transmission Date: 20130627
  Serious: Yes (Hospitalization)
  Sender: FDA-Public Use
  Company Number: US-BAYER-2012-046806

PATIENT
  Age: 49 Year
  Sex: Female

DRUGS (6)
  1. YASMIN [Suspect]
     Dosage: UNK
     Dates: start: 200505, end: 200906
  2. OCELLA [Suspect]
     Dosage: UNK
     Dates: start: 200505, end: 200906
  3. EFFEXOR [Concomitant]
     Dosage: 50 mg, daily
     Dates: start: 20090514
  4. ATENOLOL [Concomitant]
     Dosage: 50 mg, daily
     Dates: start: 20090514
  5. MAXZIDE [Concomitant]
     Dosage: 37.5 mg, daily
     Dates: start: 20090514
  6. PREVACID [Concomitant]
     Dosage: 30 mg, daily
     Dates: start: 20090514

REACTIONS (1)
  - Deep vein thrombosis [None]
